FAERS Safety Report 6785954-0 (Version None)
Quarter: 2010Q2

REPORT INFORMATION
  Report Type: 
  Country: None (occurrence: None)
  Receive Date: 20100623
  Receipt Date: 20100610
  Transmission Date: 20101027
  Serious: Yes (Hospitalization, Other)
  Sender: FDA-Public Use
  Company Number: GB-MYLANLABS-2010S1010594

PATIENT
  Age: 7 Month
  Sex: Female

DRUGS (8)
  1. CYSTAGON [Suspect]
     Indication: CYSTINOSIS
     Route: 048
     Dates: start: 20100430, end: 20100528
  2. CYSTAGON [Suspect]
     Route: 048
     Dates: start: 20100602
  3. VITAMINS [Concomitant]
     Dates: start: 20100302
  4. PHOSPHATE /01318702/ [Concomitant]
     Dates: start: 20100401
  5. DOMPERIDONE [Concomitant]
     Dates: start: 20100401
  6. ALFACALCIDOL [Concomitant]
     Dates: start: 20100401
  7. POTASSIUM CITRATE [Concomitant]
     Dates: start: 20100401
  8. SODIUM BICARBONATE [Concomitant]
     Dates: start: 20100403

REACTIONS (1)
  - PANCYTOPENIA [None]
